FAERS Safety Report 12833556 (Version 3)
Quarter: 2020Q2

REPORT INFORMATION
  Report Type: Spontaneous
  Country: US (occurrence: US)
  Receive Date: 20161010
  Receipt Date: 20200612
  Transmission Date: 20200713
  Serious: Yes (Death, Hospitalization, Other)
  Sender: FDA-Public Use
  Company Number: US-009507513-1610USA002397

PATIENT
  Sex: Male
  Weight: 110.2 kg

DRUGS (3)
  1. VICTOZA [Suspect]
     Active Substance: LIRAGLUTIDE
     Indication: DIABETES MELLITUS
     Dosage: 18MG/3ML; BID
     Dates: start: 20130722, end: 201309
  2. BYETTA [Suspect]
     Active Substance: EXENATIDE
     Indication: DIABETES MELLITUS
     Dosage: 10MCQ/0.4 ML,; BID
     Dates: start: 200802, end: 201204
  3. JANUVIA [Suspect]
     Active Substance: SITAGLIPTIN PHOSPHATE
     Indication: DIABETES MELLITUS
     Dosage: 100 MILLIGRAM, QD
     Route: 048
     Dates: start: 201204, end: 201307

REACTIONS (19)
  - Confusional state [Unknown]
  - Night sweats [Not Recovered/Not Resolved]
  - Glycosylated haemoglobin increased [Unknown]
  - Depression [Unknown]
  - Hypoaesthesia [Unknown]
  - Benign prostatic hyperplasia [Unknown]
  - Systemic inflammatory response syndrome [Recovered/Resolved]
  - Hallucination [Unknown]
  - Vitamin D deficiency [Unknown]
  - Hypogonadism [Unknown]
  - Fall [Unknown]
  - Decreased appetite [Unknown]
  - Blood disorder [Unknown]
  - Systemic inflammatory response syndrome [Unknown]
  - Weight decreased [Unknown]
  - Chills [Unknown]
  - Pancreatic carcinoma metastatic [Fatal]
  - Head injury [Unknown]
  - Fatigue [Unknown]

NARRATIVE: CASE EVENT DATE: 2013
